FAERS Safety Report 16342091 (Version 2)
Quarter: 2022Q2

REPORT INFORMATION
  Report Type: Other
  Country: US (occurrence: None)
  Receive Date: 20190522
  Receipt Date: 20220531
  Transmission Date: 20220721
  Serious: Yes (Hospitalization, Other)
  Sender: FDA-Public Use
  Company Number: US-ROCHE-2323400

PATIENT
  Age: 67 Year

DRUGS (1)
  1. ALTEPLASE [Suspect]
     Active Substance: ALTEPLASE
     Indication: Ischaemic stroke
     Dosage: FOLLOWED BY 61MG INFUSION
     Route: 040

REACTIONS (4)
  - Cerebral haemorrhage [Unknown]
  - Cerebral mass effect [Unknown]
  - Brain herniation [Unknown]
  - Haemorrhagic transformation stroke [Unknown]
